FAERS Safety Report 10383896 (Version 1)
Quarter: 2014Q1

REPORT INFORMATION
  Report Type: Spontaneous
  Country: US (occurrence: None)
  Receive Date: 20140306
  Receipt Date: 20140306
  Transmission Date: 20141002
  Serious: Yes (Disabling)
  Sender: FDA-Public Use
  Company Number: 163-21880-13106451

PATIENT
  Age: 74 Year
  Sex: Male

DRUGS (3)
  1. REVLIMID ( LENALIDOMIDE)(10 MILLIGRAM, CAPSULES) [Suspect]
     Indication: PLASMA CELL MYELOMA
     Dosage: 21 IN 28 D
     Route: 048
     Dates: start: 20111228, end: 20120214
  2. VELCADE (BORTEZOMIB) [Concomitant]
  3. ZOMETA (ZOLENDRONIC ACID) [Concomitant]

REACTIONS (4)
  - Fatigue [None]
  - Asthenia [None]
  - Plasma cell myeloma recurrent [None]
  - Performance status decreased [None]
